FAERS Safety Report 21145625 (Version 3)
Quarter: 2022Q4

REPORT INFORMATION
  Report Type: Report from Study
  Country: JP (occurrence: JP)
  Receive Date: 20220729
  Receipt Date: 20221026
  Transmission Date: 20230113
  Serious: Yes (Hospitalization, Other)
  Sender: FDA-Public Use
  Company Number: JP-TEVA-2022-JP-2059032

PATIENT
  Age: 73 Year
  Sex: Male
  Weight: 65 kg

DRUGS (6)
  1. FILGRASTIM [Suspect]
     Active Substance: FILGRASTIM
     Indication: Neutropenia
     Dosage: QD, THREE TIMES A WEEK
     Route: 058
     Dates: start: 20201015, end: 20201023
  2. FILGRASTIM [Suspect]
     Active Substance: FILGRASTIM
     Dosage: QD, TWICE A WEEK
     Route: 058
     Dates: start: 20201029, end: 20201120
  3. FILGRASTIM [Suspect]
     Active Substance: FILGRASTIM
     Dosage: QD, FOUR TIMES A WEEK
     Route: 058
     Dates: start: 20201214, end: 20201223
  4. FILGRASTIM [Suspect]
     Active Substance: FILGRASTIM
     Dosage: QD, THREE TIMES A WEEK
     Route: 058
     Dates: start: 20210107, end: 20210226
  5. FILGRASTIM [Suspect]
     Active Substance: FILGRASTIM
     Dosage: QD, THREE TIMES A WEEK
     Route: 058
     Dates: start: 20210304, end: 20210324
  6. VIDAZA [Concomitant]
     Active Substance: AZACITIDINE
     Indication: Product used for unknown indication
     Dates: start: 20201026, end: 20210217

REACTIONS (2)
  - Cardiac failure [Unknown]
  - Atrial fibrillation [Not Recovered/Not Resolved]

NARRATIVE: CASE EVENT DATE: 20210312
